FAERS Safety Report 8968383 (Version 1)
Quarter: 2012Q4

REPORT INFORMATION
  Report Type: 
  Country: US (occurrence: US)
  Receive Date: 20121218
  Receipt Date: 20121218
  Transmission Date: 20130627
  Serious: No
  Sender: FDA-Public Use
  Company Number: US-BRISTOL-MYERS SQUIBB COMPANY-16766909

PATIENT
  Age: 46 Year
  Sex: Male
  Weight: 68.03 kg

DRUGS (6)
  1. ABILIFY [Suspect]
     Indication: POST-TRAUMATIC STRESS DISORDER
     Dosage: Ablify 20mg cuts them in half for 10mg daily dose.
started with 5mg
  2. LEXAPRO [Suspect]
  3. KEPPRA [Suspect]
  4. SYNTHROID [Concomitant]
  5. CLONAZEPAM [Concomitant]
  6. PAXIL [Concomitant]

REACTIONS (3)
  - Abnormal behaviour [Unknown]
  - Mood altered [Unknown]
  - Abnormal dreams [Recovered/Resolved]
